FAERS Safety Report 5262812-4 (Version None)
Quarter: 2007Q1

REPORT INFORMATION
  Report Type: 
  Country: None (occurrence: None)
  Receive Date: 20070312
  Receipt Date: 20070306
  Transmission Date: 20070707
  Serious: Yes (Other)
  Sender: FDA-Public Use
  Company Number: DE-GLAXOSMITHKLINE-D0052241A

PATIENT
  Age: 30 Year
  Sex: Female
  Weight: 58 kg

DRUGS (5)
  1. ARIXTRA [Suspect]
     Route: 065
     Dates: start: 20061213, end: 20070208
  2. PHENYTOIN [Concomitant]
     Route: 048
  3. SALOFALK [Concomitant]
     Route: 048
  4. AZATHIOPRINE [Concomitant]
     Route: 048
  5. CALCIUM (UNSPECIFIED) [Concomitant]
     Route: 048

REACTIONS (2)
  - EOSINOPHILIA [None]
  - LEUKOPENIA [None]
